FAERS Safety Report 23073528 (Version 1)
Quarter: 2023Q4

REPORT INFORMATION
  Report Type: Spontaneous
  Country: US (occurrence: US)
  Receive Date: 20231017
  Receipt Date: 20231017
  Transmission Date: 20240109
  Serious: Yes (Other)
  Sender: FDA-Public Use
  Company Number: US-BRISTOL-MYERS SQUIBB COMPANY-2023-146413

PATIENT
  Age: 70 Year
  Sex: Female

DRUGS (1)
  1. LENALIDOMIDE [Suspect]
     Active Substance: LENALIDOMIDE
     Indication: Plasma cell myeloma
     Dosage: TAKE 1 CAPSULE (10MG) WHOLE BY MOUTH WITH WATER AT THE SAME TIME EACH DAY ON DAYS 1-14 OF EACH 28-DA
     Route: 048
     Dates: start: 20230208

REACTIONS (3)
  - Bone pain [Not Recovered/Not Resolved]
  - Arthralgia [Unknown]
  - Off label use [Unknown]
